FAERS Safety Report 8887474 (Version 1)
Quarter: 2012Q4

REPORT INFORMATION
  Report Type: Spontaneous
  Country: US (occurrence: None)
  Receive Date: 20121101
  Receipt Date: 20121101
  Transmission Date: 20130627
  Serious: No
  Sender: FDA-Public Use
  Company Number: None

PATIENT
  Age: 2 Month
  Sex: Male
  Weight: 39.01 kg

DRUGS (10)
  1. MONTELUKAST [Suspect]
     Indication: CHRONIC RHINITIS
  2. MONTELUKAST [Suspect]
     Indication: CHRONIC RHINITIS
  3. DIASTAT [Concomitant]
  4. HYDROCORTISONE [Concomitant]
  5. MIRALAX [Concomitant]
  6. NASACORT [Concomitant]
  7. PHEROBARBITAS [Concomitant]
  8. PULMICORT [Concomitant]
  9. ALBUTEROL [Concomitant]
  10. ZYRTEC [Concomitant]

REACTIONS (3)
  - Wheezing [None]
  - Chest discomfort [None]
  - Erythema [None]
